FAERS Safety Report 7411062-1 (Version None)
Quarter: 2011Q2

REPORT INFORMATION
  Report Type: 
  Country: None (occurrence: None)
  Receive Date: 20110413
  Receipt Date: 20110405
  Transmission Date: 20111010
  Serious: Yes (Disabling, Other)
  Sender: FDA-Public Use
  Company Number: DE-SANOFI-AVENTIS-2011SA006225

PATIENT
  Age: 71 Year
  Sex: Female
  Weight: 62 kg

DRUGS (7)
  1. CITALOPRAM [Concomitant]
     Indication: PAIN
     Route: 048
     Dates: start: 20100801
  2. QUENSYL [Suspect]
     Route: 048
     Dates: start: 20101210, end: 20101222
  3. PREDNISOLONE [Concomitant]
     Route: 048
  4. PREDNISOLONE [Concomitant]
     Route: 048
  5. QUENSYL [Suspect]
     Indication: ARTHRITIS
     Route: 048
     Dates: start: 20101210, end: 20101222
  6. DICLOFENAC [Concomitant]
     Indication: PAIN
     Route: 048
     Dates: start: 20100801
  7. CALCIUM/COLECALCIFEROL [Concomitant]
     Route: 048
     Dates: start: 20101201

REACTIONS (11)
  - HYPERSENSITIVITY [None]
  - ACNE [None]
  - SWELLING [None]
  - INDURATION [None]
  - PAIN [None]
  - RASH [None]
  - RENAL IMPAIRMENT [None]
  - WEIGHT INCREASED [None]
  - BLOOD CREATININE INCREASED [None]
  - VISCERAL CONGESTION [None]
  - OEDEMA [None]
